FAERS Safety Report 9871507 (Version 3)
Quarter: 2014Q1

REPORT INFORMATION
  Report Type: Spontaneous
  Country: US (occurrence: US)
  Receive Date: 20140205
  Receipt Date: 20140221
  Transmission Date: 20141002
  Serious: Yes (Hospitalization, Other)
  Sender: FDA-Public Use
  Company Number: US-JNJFOC-20140201786

PATIENT
  Age: 79 Year
  Sex: Male
  Weight: 64.7 kg

DRUGS (24)
  1. IMBRUVICA [Suspect]
     Indication: CHRONIC LYMPHOCYTIC LEUKAEMIA
     Route: 048
     Dates: start: 20131122, end: 20140120
  2. WELLBUTRIN [Concomitant]
  3. TYLENOL [Concomitant]
  4. ACYCLOVIR [Concomitant]
  5. MECOBALAMIN [Concomitant]
  6. DULCOLAX [Concomitant]
     Route: 054
  7. ZYRTEC [Concomitant]
  8. DIGOXIN [Concomitant]
  9. SENOKOT [Concomitant]
  10. FLUCONAZOLE [Concomitant]
  11. LEVOTHYROXINE [Concomitant]
  12. TIMOLOL [Concomitant]
     Route: 047
  13. FLEET [Concomitant]
  14. ZOLOFT [Concomitant]
  15. TRAZODONE [Concomitant]
  16. METOPROLOL [Concomitant]
  17. PROTONIX [Concomitant]
  18. MORPHINE SULFATE [Concomitant]
  19. LUBRIDERM [Concomitant]
     Route: 061
  20. ARIXTRA [Concomitant]
  21. ATIVAN [Concomitant]
     Route: 048
  22. GUAIFENESIN [Concomitant]
  23. MILK OF MAGNESIA [Concomitant]
  24. CIPRO [Concomitant]

REACTIONS (3)
  - Dysphagia [Not Recovered/Not Resolved]
  - Lung infiltration [Unknown]
  - Asthenia [Recovered/Resolved]
